FAERS Safety Report 20141424 (Version 2)
Quarter: 2021Q4

REPORT INFORMATION
  Report Type: Spontaneous
  Country: US (occurrence: US)
  Receive Date: 20211202
  Receipt Date: 20211217
  Transmission Date: 20220303
  Serious: Yes (Hospitalization, Other)
  Sender: FDA-Public Use
  Company Number: US-CELGENE-USA-20211103238

PATIENT
  Sex: Male

DRUGS (1)
  1. POMALYST [Suspect]
     Active Substance: POMALIDOMIDE
     Indication: Osteoarthritis
     Dosage: 2 MILLIGRAM
     Route: 048
     Dates: start: 20210706

REACTIONS (1)
  - Cardiac disorder [Recovered/Resolved]
